FAERS Safety Report 17954182 (Version 1)
Quarter: 2020Q2

REPORT INFORMATION
  Report Type: Report from Study
  Country: US (occurrence: US)
  Receive Date: 20200629
  Receipt Date: 20200629
  Transmission Date: 20200714
  Serious: Yes (Hospitalization, Other)
  Sender: FDA-Public Use
  Company Number: US-ROCHE-2407933

PATIENT
  Age: 40 Year
  Sex: Female
  Weight: 56.5 kg

DRUGS (3)
  1. PEMETREXED. [Suspect]
     Active Substance: PEMETREXED
     Indication: PLEURAL MESOTHELIOMA MALIGNANT
     Route: 065
     Dates: start: 20190412
  2. CISPLATIN. [Suspect]
     Active Substance: CISPLATIN
     Indication: PLEURAL MESOTHELIOMA MALIGNANT
     Route: 065
     Dates: start: 20190412
  3. ATEZOLIZUMAB. [Suspect]
     Active Substance: ATEZOLIZUMAB
     Indication: PLEURAL MESOTHELIOMA MALIGNANT
     Dosage: THIS WAS ALSO THE MOST RECENT DOSE OF ATEZOLIZUMAB PRIOR TO EVENT ONSET
     Route: 041
     Dates: start: 20190412

REACTIONS (6)
  - Anaemia [Unknown]
  - Pneumonia [Recovering/Resolving]
  - Vomiting [Unknown]
  - Nausea [Unknown]
  - Hypoxia [Unknown]
  - Pneumonia [Unknown]

NARRATIVE: CASE EVENT DATE: 20190426
